FAERS Safety Report 5900722-7 (Version None)
Quarter: 2008Q3

REPORT INFORMATION
  Report Type: 
  Country: None (occurrence: None)
  Receive Date: 20080928
  Receipt Date: 20080917
  Transmission Date: 20090109
  Serious: Yes (Hospitalization, Other)
  Sender: FDA-Public Use
  Company Number: US-JNJFOC-20080306872

PATIENT
  Sex: Male
  Weight: 84.37 kg

DRUGS (3)
  1. REMICADE [Suspect]
  2. REMICADE [Suspect]
     Indication: CROHN'S DISEASE
  3. PREDNISONE [Concomitant]

REACTIONS (2)
  - ANAEMIA [None]
  - SMALL INTESTINE CARCINOMA [None]
